FAERS Safety Report 4407986-X (Version None)
Quarter: 2004Q3

REPORT INFORMATION
  Report Type: 
  Country: None (occurrence: None)
  Receive Date: 20040722
  Receipt Date: 20040712
  Transmission Date: 20050211
  Serious: Yes (Death, Hospitalization)
  Sender: FDA-Public Use
  Company Number: HQWYE001312JUL04

PATIENT
  Age: 82 Year
  Sex: Male

DRUGS (4)
  1. CORDARONE [Suspect]
     Dosage: 100 MG 1X PER 1 DAY, ORAL
     Route: 048
     Dates: end: 20040531
  2. DIGOXIN [Suspect]
     Dosage: 0.125 MG 1X PER 1 DAY
     Route: 048
  3. OMEPRAZOLE [Suspect]
     Dosage: 20 MG 1X PER 1 DAY
     Route: 048
  4. SINTROM [Suspect]
     Route: 048

REACTIONS (3)
  - ACUTE RESPIRATORY DISTRESS SYNDROME [None]
  - CHEST X-RAY ABNORMAL [None]
  - PNEUMONIA [None]
